FAERS Safety Report 5968100-2 (Version None)
Quarter: 2008Q4

REPORT INFORMATION
  Report Type: 
  Country: None (occurrence: None)
  Receive Date: 20081119
  Receipt Date: 20080825
  Transmission Date: 20090506
  Serious: No
  Sender: FDA-Public Use
  Company Number: WAES 0808USA04695

PATIENT
  Age: 56 Year
  Sex: Female

DRUGS (9)
  1. JANUVIA [Suspect]
     Indication: DIABETES MELLITUS
     Dosage: 100 MG/DAILY/PO
     Route: 048
     Dates: start: 20080822
  2. FORTEO [Concomitant]
  3. TOPROL-XL [Concomitant]
  4. THERAPY UNSPECIFIED [Concomitant]
  5. CYANOCOBALAMIN [Concomitant]
  6. DOXEPIN HYDROCHLORIDE [Concomitant]
  7. FOLIC ACID [Concomitant]
  8. VITAMIN D (UNSPECIFIED) [Concomitant]
  9. WARFARIN SODIUM [Concomitant]

REACTIONS (1)
  - DRUG INEFFECTIVE [None]
